FAERS Safety Report 12265798 (Version 1)
Quarter: 2016Q2

REPORT INFORMATION
  Report Type: Spontaneous
  Country: US (occurrence: US)
  Receive Date: 20160413
  Receipt Date: 20160413
  Transmission Date: 20160815
  Serious: Yes (Death, Hospitalization)
  Sender: FDA-Public Use
  Company Number: US-JNJFOC-20160409980

PATIENT
  Sex: Male

DRUGS (1)
  1. XARELTO [Suspect]
     Active Substance: RIVAROXABAN
     Indication: PRODUCT USED FOR UNKNOWN INDICATION
     Route: 048
     Dates: start: 20131220, end: 20140127

REACTIONS (5)
  - Cerebral haemorrhage [Fatal]
  - Gastrointestinal haemorrhage [Fatal]
  - Respiratory failure [Fatal]
  - Epistaxis [Fatal]
  - Haematemesis [Fatal]

NARRATIVE: CASE EVENT DATE: 20140127
